FAERS Safety Report 6297882-8 (Version None)
Quarter: 2009Q3

REPORT INFORMATION
  Report Type: 
  Country: None (occurrence: None)
  Receive Date: 20090805
  Receipt Date: 20090728
  Transmission Date: 20100115
  Serious: Yes (Hospitalization, Other)
  Sender: FDA-Public Use
  Company Number: US-ELI_LILLY_AND_COMPANY-US200907006283

PATIENT
  Sex: Female
  Weight: 126.98 kg

DRUGS (8)
  1. BYETTA [Suspect]
     Indication: TYPE 2 DIABETES MELLITUS
     Dosage: 5 UG, 2/D
     Route: 058
     Dates: start: 20080701, end: 20080801
  2. BYETTA [Suspect]
     Dosage: 10 UG, 2/D
     Route: 058
     Dates: start: 20080801
  3. METFORMIN [Concomitant]
     Indication: TYPE 2 DIABETES MELLITUS
     Dosage: UNK, UNKNOWN
  4. GLYBURIDE [Concomitant]
     Indication: TYPE 2 DIABETES MELLITUS
     Dosage: UNK, UNKNOWN
  5. ACTOS [Concomitant]
     Indication: TYPE 2 DIABETES MELLITUS
     Dosage: UNK, UNKNOWN
  6. COMBIVENT [Concomitant]
     Dosage: UNK, UNKNOWN
  7. LISINOPRIL [Concomitant]
     Dosage: UNK, UNKNOWN
  8. SIMVASTATIN [Concomitant]
     Dosage: UNK, UNKNOWN

REACTIONS (9)
  - ABDOMINAL DISTENSION [None]
  - ASTHMA [None]
  - BRONCHITIS [None]
  - CROUP INFECTIOUS [None]
  - DYSPHONIA [None]
  - NAUSEA [None]
  - PNEUMONIA [None]
  - PRURITUS GENERALISED [None]
  - RESPIRATORY TRACT CONGESTION [None]
